FAERS Safety Report 5251501-8 (Version None)
Quarter: 2007Q1

REPORT INFORMATION
  Report Type: 
  Country: None (occurrence: None)
  Receive Date: 20070228
  Receipt Date: 20060607
  Transmission Date: 20070707
  Serious: No
  Sender: FDA-Public Use
  Company Number: US-GLAXOSMITHKLINE-A0606105A

PATIENT
  Age: 33 Year
  Sex: Female

DRUGS (4)
  1. LAMICTAL [Suspect]
     Indication: BIPOLAR DISORDER
     Dosage: 400MG PER DAY
     Route: 048
     Dates: start: 20040908
  2. ABILIFY [Concomitant]
     Indication: BIPOLAR DISORDER
     Dates: start: 20030101
  3. TRILEPTAL [Concomitant]
     Indication: BIPOLAR DISORDER
     Dosage: 300MG PER DAY
     Dates: start: 20040424
  4. SEROQUEL [Concomitant]
     Indication: BIPOLAR DISORDER
     Dosage: 50MG PER DAY
     Dates: start: 20050901

REACTIONS (3)
  - PHOTOPHOBIA [None]
  - PHOTOSENSITIVITY REACTION [None]
  - SUNBURN [None]
